FAERS Safety Report 8203941-2 (Version None)
Quarter: 2012Q1

REPORT INFORMATION
  Report Type: 
  Country: None (occurrence: None)
  Receive Date: 20120313
  Receipt Date: 20120305
  Transmission Date: 20120608
  Serious: Yes (Other)
  Sender: FDA-Public Use
  Company Number: US-US-EMD SERONO, INC.-7117369

PATIENT
  Sex: Female

DRUGS (3)
  1. MOTRIN [Concomitant]
     Indication: PREMEDICATION
  2. REBIF [Suspect]
     Indication: MULTIPLE SCLEROSIS
     Route: 058
     Dates: start: 20090317
  3. MOTRIN [Concomitant]
     Indication: HEADACHE

REACTIONS (4)
  - INJECTION SITE NODULE [None]
  - CHOLELITHIASIS [None]
  - FATIGUE [None]
  - POLLAKIURIA [None]
